FAERS Safety Report 7838713 (Version 2)
Quarter: 2013Q1

REPORT INFORMATION
  Report Type: Spontaneous
  Country: ES (occurrence: ES)
  Receive Date: 20110303
  Receipt Date: 20130321
  Transmission Date: 20140127
  Serious: Yes (Hospitalization)
  Sender: FDA-Public Use
  Company Number: ES-ELI_LILLY_AND_COMPANY-ES201102006591

PATIENT
  Age: 81 Year
  Sex: Male

DRUGS (5)
  1. FORSTEO [Suspect]
     Indication: OSTEOPOROSIS
     Dosage: 20 UG, DAILY (1/D)
     Route: 058
     Dates: start: 20110218
  2. PARACETAMOL [Concomitant]
     Indication: PAIN
     Dosage: 4 G, DAILY (1/D)
     Route: 048
  3. FENTANILO [Concomitant]
     Indication: PAIN
     Dosage: 50 MG, UNK
     Route: 062
  4. NOLOTIL [Concomitant]
     Indication: PAIN
     Route: 048
  5. ORFIDAL [Concomitant]
     Dosage: UNK, DAILY (1/D)
     Route: 048

REACTIONS (2)
  - Ulcer haemorrhage [Not Recovered/Not Resolved]
  - Haemoptysis [Unknown]
